FAERS Safety Report 9884909 (Version 2)
Quarter: 2014Q1

REPORT INFORMATION
  Report Type: Spontaneous
  Country: US (occurrence: US)
  Receive Date: 20140210
  Receipt Date: 20140210
  Transmission Date: 20141002
  Serious: Yes (Disabling)
  Sender: FDA-Public Use
  Company Number: US-GE HEALTHCARE MEDICAL DIAGNOSTICS-OSCN-PR-0909S-0433

PATIENT
  Age: 63 Year
  Sex: Female
  Weight: 61.36 kg

DRUGS (15)
  1. GADOLINIUM (UNSPECIFIED) [Suspect]
     Indication: PRODUCT USED FOR UNKNOWN INDICATION
     Route: 042
     Dates: start: 20000829, end: 20000829
  2. MAGNEVIST [Suspect]
     Indication: CEREBROVASCULAR ACCIDENT
     Route: 042
     Dates: start: 20001002, end: 20001002
  3. MAGNEVIST [Suspect]
     Indication: GAIT DISTURBANCE
     Route: 042
     Dates: start: 20001104, end: 20001104
  4. MAGNEVIST [Suspect]
     Indication: VASCULITIS
     Route: 042
     Dates: start: 20001212, end: 20001212
  5. MAGNEVIST [Suspect]
     Route: 042
     Dates: start: 20050707, end: 20050707
  6. OPTIMARK [Suspect]
     Dates: start: 20060203, end: 20060203
  7. OPTIMARK [Suspect]
     Dates: start: 20060922, end: 20060922
  8. NEPHROCAPS [Concomitant]
  9. RENAGEL [Concomitant]
  10. PHOSLO [Concomitant]
  11. ZOCOR [Concomitant]
  12. PROTONIX [Concomitant]
  13. TYLENOL [Concomitant]
  14. COUMADIN [Concomitant]
  15. OPTIRAY [Concomitant]

REACTIONS (1)
  - Nephrogenic systemic fibrosis [Not Recovered/Not Resolved]
